FAERS Safety Report 9436887 (Version 1)
Quarter: 2013Q3

REPORT INFORMATION
  Report Type: Spontaneous
  Country: US (occurrence: US)
  Receive Date: 20130802
  Receipt Date: 20130802
  Transmission Date: 20140515
  Serious: Yes (Other)
  Sender: FDA-Public Use
  Company Number: US-009507513-1307USA014052

PATIENT
  Sex: Male

DRUGS (1)
  1. MEVACOR TABLET [Suspect]
     Dosage: DOSE RANGIN FROM 10 MG TO 40 MG AT UNKNOWN FREQUENCY
     Route: 048
     Dates: start: 1980, end: 1995

REACTIONS (4)
  - IIIrd nerve paresis [Recovered/Resolved]
  - VIth nerve paralysis [Recovered/Resolved]
  - VIIth nerve paralysis [Recovered/Resolved]
  - Coronary artery bypass [Unknown]
